FAERS Safety Report 14952724 (Version 1)
Quarter: 2018Q2

REPORT INFORMATION
  Report Type: Spontaneous
  Country: DE (occurrence: DE)
  Receive Date: 20180530
  Receipt Date: 20180530
  Transmission Date: 20180711
  Serious: Yes (Hospitalization)
  Sender: FDA-Public Use
  Company Number: DE-ASTRAZENECA-2018SE67561

PATIENT
  Age: 76 Year
  Sex: Female

DRUGS (8)
  1. QUETIAPINE. [Suspect]
     Active Substance: QUETIAPINE
     Dosage: 50 MG, 1-1-1-0
     Route: 048
  2. RESTEX [Suspect]
     Active Substance: BENSERAZIDE\LEVODOPA
     Dosage: NK MG, AS REQUIRED
     Route: 065
  3. LYRICA [Suspect]
     Active Substance: PREGABALIN
     Dosage: 50 MG, 1-1-1-0
     Route: 065
  4. TAVOR (LORAZEPAM) [Suspect]
     Active Substance: LORAZEPAM
     Dosage: 0.5MG AS REQUIRED
     Route: 065
  5. ZOPICLON [Suspect]
     Active Substance: ZOPICLONE
     Dosage: 7.5 MG, NK
     Route: 065
  6. MIRTAZAPINE. [Suspect]
     Active Substance: MIRTAZAPINE
     Dosage: 45 MG, 0-0-0-1
     Route: 065
  7. MIRTAZAPINE. [Suspect]
     Active Substance: MIRTAZAPINE
     Dosage: 15 MG, 1-0-0-0
     Route: 065
  8. QUETIAPINE. [Suspect]
     Active Substance: QUETIAPINE
     Dosage: 300 MG, 0-0-0-1
     Route: 048

REACTIONS (5)
  - Nausea [Unknown]
  - General physical health deterioration [Unknown]
  - Vomiting [Unknown]
  - Gait disturbance [Unknown]
  - Somnolence [Unknown]
